FAERS Safety Report 5496774-1 (Version None)
Quarter: 2007Q4

REPORT INFORMATION
  Report Type: 
  Country: None (occurrence: None)
  Receive Date: 20071023
  Receipt Date: 20071023
  Transmission Date: 20080405
  Serious: No
  Sender: FDA-Public Use
  Company Number: None

PATIENT
  Age: 55 Year
  Sex: Female

DRUGS (17)
  1. WELLBUTRIN [Suspect]
  2. LEVOTHYROXINE SODIUM [Concomitant]
  3. ZYRTEC [Concomitant]
  4. ZEDIA [Concomitant]
  5. EFFEXOR [Concomitant]
  6. ANIPRIL [Concomitant]
  7. TRICHLOR [Concomitant]
  8. PLAVIX [Concomitant]
  9. TRILEPTOL [Concomitant]
  10. CELEBREX [Concomitant]
  11. TIZANIDINE HCL [Concomitant]
  12. METFORMIN [Concomitant]
  13. BUSPAR [Concomitant]
  14. MULTI VIT [Concomitant]
  15. VIT C [Concomitant]
  16. CALCIUM [Concomitant]
  17. FOLIC ACID [Concomitant]

REACTIONS (4)
  - CRYING [None]
  - EMOTIONAL DISORDER [None]
  - SUICIDAL IDEATION [None]
  - THERAPEUTIC RESPONSE UNEXPECTED WITH DRUG SUBSTITUTION [None]
